FAERS Safety Report 23123737 (Version 1)
Quarter: 2023Q4

REPORT INFORMATION
  Report Type: Spontaneous
  Country: CN (occurrence: CN)
  Receive Date: 20231030
  Receipt Date: 20231030
  Transmission Date: 20240110
  Serious: Yes (Hospitalization, Other)
  Sender: FDA-Public Use
  Company Number: None

PATIENT
  Age: 22 Year
  Sex: Male
  Weight: 63 kg

DRUGS (4)
  1. MANNITOL [Suspect]
     Active Substance: MANNITOL
     Indication: Reduction of increased intracranial pressure
     Dosage: 125 ML , TWICE DAILY (DOSAGE FORM: INJECTION)
     Route: 041
     Dates: start: 20231013, end: 20231014
  2. ACYCLOVIR [Suspect]
     Active Substance: ACYCLOVIR
     Indication: Encephalitis
     Dosage: 0.5 G, THREE TIMES A DAY (DILUTED IN 250 ML OF SODIUM CHLORIDE)
     Route: 041
     Dates: start: 20231011, end: 20231014
  3. SODIUM CHLORIDE [Suspect]
     Active Substance: SODIUM CHLORIDE
     Indication: Medication dilution
     Dosage: 250 ML, THREE TIMES A DAY (DILUTED WITH 0.5 G OF ACYCLOVIR)
     Route: 041
     Dates: start: 20231011, end: 20231014
  4. OLANZAPINE [Suspect]
     Active Substance: OLANZAPINE
     Indication: Acute psychosis
     Dosage: 15 MG, ONCE DAILY
     Route: 048
     Dates: start: 20231001, end: 20231015

REACTIONS (1)
  - Blood creatinine increased [Recovering/Resolving]

NARRATIVE: CASE EVENT DATE: 20231014
